FAERS Safety Report 13893836 (Version 1)
Quarter: 2017Q3

REPORT INFORMATION
  Report Type: Spontaneous
  Country: US (occurrence: US)
  Receive Date: 20170822
  Receipt Date: 20170822
  Transmission Date: 20171127
  Serious: No
  Sender: FDA-Public Use
  Company Number: US-GALDERMA-US16006760

PATIENT
  Sex: Male
  Weight: 75 kg

DRUGS (5)
  1. LISINOPRIL. [Concomitant]
     Active Substance: LISINOPRIL
     Indication: PRODUCT USED FOR UNKNOWN INDICATION
     Route: 048
     Dates: start: 1991
  2. POTASSIUM [Concomitant]
     Active Substance: POTASSIUM
     Indication: PRODUCT USED FOR UNKNOWN INDICATION
     Route: 048
     Dates: start: 201603
  3. METRONIDAZOLE GEL, 1% [Suspect]
     Active Substance: METRONIDAZOLE
     Indication: SKIN LESION
     Dosage: 1%
     Route: 061
     Dates: start: 2015, end: 2015
  4. CHLORTHALIDONE. [Concomitant]
     Active Substance: CHLORTHALIDONE
     Indication: PRODUCT USED FOR UNKNOWN INDICATION
     Route: 048
     Dates: start: 201601
  5. METRONIDAZOLE GEL, 1% [Suspect]
     Active Substance: METRONIDAZOLE
     Route: 061
     Dates: start: 20160901, end: 20160918

REACTIONS (2)
  - Expired product administered [Recovered/Resolved]
  - Drug ineffective [Not Recovered/Not Resolved]
